FAERS Safety Report 23015237 (Version 1)
Quarter: 2023Q4

REPORT INFORMATION
  Report Type: Spontaneous
  Country: US (occurrence: US)
  Receive Date: 20231002
  Receipt Date: 20231002
  Transmission Date: 20240110
  Serious: No
  Sender: FDA-Public Use
  Company Number: US-Vertical Pharmaceuticals, LLC-VERT20230172

PATIENT
  Age: 17 Year
  Sex: Male
  Weight: 67.555 kg

DRUGS (1)
  1. DSUVIA [Suspect]
     Active Substance: SUFENTANIL
     Indication: Pain management
     Dosage: UNKNOWN
     Route: 060
     Dates: start: 20230711

REACTIONS (1)
  - Drug ineffective [Recovered/Resolved]

NARRATIVE: CASE EVENT DATE: 20230711
